FAERS Safety Report 8993243 (Version 1)
Quarter: 2013Q1

REPORT INFORMATION
  Report Type: Spontaneous
  Country: JP (occurrence: JP)
  Receive Date: 20130102
  Receipt Date: 20130102
  Transmission Date: 20140127
  Serious: Yes (Other)
  Sender: FDA-Public Use
  Company Number: JP-PFIZER INC-2012321957

PATIENT
  Age: 60 Year
  Sex: Female

DRUGS (2)
  1. CELECOX [Suspect]
     Dosage: 200 MG/DAY
     Route: 048
     Dates: start: 20121206, end: 20121215
  2. EDIROL [Suspect]
     Dosage: UNK
     Route: 048
     Dates: start: 20121206, end: 20121215

REACTIONS (5)
  - Urticaria [Unknown]
  - Eczema [Unknown]
  - Erythema [Unknown]
  - Oedema mouth [Unknown]
  - Mouth ulceration [Unknown]
